FAERS Safety Report 5053596-3 (Version None)
Quarter: 2006Q3

REPORT INFORMATION
  Report Type: 
  Country: None (occurrence: None)
  Receive Date: 20060712
  Receipt Date: 20060629
  Transmission Date: 20061208
  Serious: Yes (Life-Threatening, Other)
  Sender: FDA-Public Use
  Company Number: HQWYE489329JUN06

PATIENT
  Age: 55 Year
  Sex: Male

DRUGS (5)
  1. AMIODARONE HCL [Suspect]
     Indication: ATRIAL FIBRILLATION
     Dosage: 150 MG ONCE INTRAVENOUS
     Route: 042
     Dates: start: 20060614, end: 20060614
  2. ENOXAPARIN SODIUM [Concomitant]
  3. VALSARTAN [Concomitant]
  4. LAROXYL (AMTRIPTYLINE HYDROCHLORIDE) [Concomitant]
  5. TACHIPIRINA (PARACEMTAMOL) [Concomitant]

REACTIONS (10)
  - ANXIETY [None]
  - BURNING SENSATION [None]
  - FEELING HOT [None]
  - HYPERHIDROSIS [None]
  - HYPOTENSION [None]
  - INFUSION RELATED REACTION [None]
  - MUSCULOSKELETAL PAIN [None]
  - PAIN [None]
  - RASH [None]
  - SENSE OF OPPRESSION [None]
